FAERS Safety Report 8043522-7 (Version None)
Quarter: 2012Q1

REPORT INFORMATION
  Report Type: 
  Country: None (occurrence: None)
  Receive Date: 20120112
  Receipt Date: 20120104
  Transmission Date: 20120608
  Serious: Yes (Other)
  Sender: FDA-Public Use
  Company Number: CL-PFIZER INC-2012003360

PATIENT
  Age: 64 Year
  Sex: Female

DRUGS (4)
  1. XALATAN [Suspect]
     Indication: GLAUCOMA
     Dosage: 1 GTT, 1X/DAY
     Dates: start: 20060101
  2. COSOPT [Concomitant]
     Dosage: UNK
  3. TRAMADOL HYDROCHLORIDE AND ACETAMINOPHEN [Concomitant]
     Dosage: UNK
  4. GLUCOSAMINE CHONDROITIN PM [Concomitant]
     Dosage: UNK

REACTIONS (1)
  - CARPAL TUNNEL DECOMPRESSION [None]
